FAERS Safety Report 13954605 (Version 1)
Quarter: 2017Q3

REPORT INFORMATION
  Report Type: Spontaneous
  Country: US (occurrence: US)
  Receive Date: 20170911
  Receipt Date: 20170911
  Transmission Date: 20171128
  Serious: Yes (Hospitalization)
  Sender: FDA-Public Use
  Company Number: US-TARO PHARMACEUTICALS USA.,INC-2017SUN00312

PATIENT
  Age: 17 Year
  Sex: Female

DRUGS (4)
  1. IBUPROFEN [Concomitant]
     Indication: SUICIDE ATTEMPT
     Route: 048
  2. METOPROLOL [Concomitant]
     Indication: SUICIDE ATTEMPT
     Route: 048
  3. ACETAMINOPHEN [Concomitant]
     Indication: SUICIDE ATTEMPT
     Route: 048
  4. WARFARIN [Suspect]
     Active Substance: WARFARIN
     Indication: SUICIDE ATTEMPT
     Dosage: UNK
     Route: 048

REACTIONS (2)
  - Intentional overdose [Not Recovered/Not Resolved]
  - Ischaemic stroke [Not Recovered/Not Resolved]
